FAERS Safety Report 7165195-8 (Version None)
Quarter: 2010Q4

REPORT INFORMATION
  Report Type: 
  Country: None (occurrence: None)
  Receive Date: 20101215
  Receipt Date: 20091221
  Transmission Date: 20110411
  Serious: No
  Sender: FDA-Public Use
  Company Number: US-AMGEN-QUU381929

PATIENT

DRUGS (1)
  1. ENBREL [Suspect]
     Indication: RHEUMATOID ARTHRITIS
     Dosage: UNK UNK, UNK

REACTIONS (9)
  - ALOPECIA [None]
  - ANAEMIA [None]
  - BURNING SENSATION [None]
  - EAR PAIN [None]
  - HEADACHE [None]
  - NECK PAIN [None]
  - PAIN OF SKIN [None]
  - VISUAL IMPAIRMENT [None]
  - WEIGHT DECREASED [None]
